FAERS Safety Report 12384597 (Version 1)
Quarter: 2016Q2

REPORT INFORMATION
  Report Type: Spontaneous
  Country: US (occurrence: US)
  Receive Date: 20160519
  Receipt Date: 20160519
  Transmission Date: 20160815
  Serious: No
  Sender: FDA-Public Use
  Company Number: US-PFIZER INC-2016228553

PATIENT
  Age: 45 Year
  Sex: Male

DRUGS (9)
  1. IBUPROFEN. [Concomitant]
     Active Substance: IBUPROFEN
     Dosage: 200 MG, AS NEEDED (Q 8 HOURS PRN)
     Route: 048
     Dates: end: 20150702
  2. XALKORI [Suspect]
     Active Substance: CRIZOTINIB
     Dosage: 250 MG, 2X/DAY (FOR 28 DAYS)
     Route: 048
     Dates: start: 20150508, end: 20160316
  3. ONDANSETRON HCL [Concomitant]
     Active Substance: ONDANSETRON HYDROCHLORIDE
     Dosage: 8 MG, AS NEEDED (Q 8 HOURS FOR 30 DAYS PRN)
     Route: 048
     Dates: start: 20150319, end: 20150617
  4. XALKORI [Suspect]
     Active Substance: CRIZOTINIB
     Indication: LUNG ADENOCARCINOMA
     Dosage: 250 MG, 2X/DAY (TAKE TWICE DAILY WITH OR WITHOUT FOOD ON DAYS 1-28 CONTINUOUSLY, AVOID GRAPEFRUIT)
     Route: 048
     Dates: start: 20150930
  5. ACETAMINOPHEN. [Concomitant]
     Active Substance: ACETAMINOPHEN
     Dosage: 500 MG, AS NEEDED (Q 6 HOURS)
     Route: 048
     Dates: end: 20150702
  6. OMEPRAZOLE. [Concomitant]
     Active Substance: OMEPRAZOLE
     Dosage: 20 MG, DAILY
     Route: 048
     Dates: start: 20160311
  7. FOLIC ACID. [Concomitant]
     Active Substance: FOLIC ACID
     Dosage: 1 MG, 1X/DAY (DAILY FOR 30 DAYS)
     Route: 048
     Dates: start: 20150319, end: 20150717
  8. ATIVAN [Concomitant]
     Active Substance: LORAZEPAM
     Dosage: 1 MG, 1X/DAY
     Route: 048
     Dates: start: 20150624, end: 20150625
  9. PROCHLORPERAZINE MALEATE. [Concomitant]
     Active Substance: PROCHLORPERAZINE MALEATE
     Dosage: 10 MG, AS NEEDED (Q 6 HOURS FOR 30 DAY)
     Route: 048
     Dates: start: 20150319, end: 20150518

REACTIONS (6)
  - Hypertension [Unknown]
  - Alanine aminotransferase increased [Unknown]
  - Nausea [Unknown]
  - Dysgeusia [Unknown]
  - Asthenia [Unknown]
  - Diarrhoea [Recovering/Resolving]

NARRATIVE: CASE EVENT DATE: 20151217
